FAERS Safety Report 20515462 (Version 1)
Quarter: 2022Q1

REPORT INFORMATION
  Report Type: Spontaneous
  Country: US (occurrence: US)
  Receive Date: 20220224
  Receipt Date: 20220224
  Transmission Date: 20220423
  Serious: No
  Sender: FDA-Public Use
  Company Number: US-LANTHEUS-LMI-2021-00071

PATIENT
  Age: 39 Year
  Sex: Male
  Weight: 181 kg

DRUGS (1)
  1. DEFINITY [Suspect]
     Active Substance: PERFLUTREN
     Indication: Echocardiogram
     Dosage: UNK
     Route: 042

REACTIONS (5)
  - Monoplegia [Unknown]
  - Sitting disability [Unknown]
  - Presyncope [Recovered/Resolved]
  - Pain [Unknown]
  - Arthralgia [Recovered/Resolved]
